FAERS Safety Report 16114441 (Version 2)
Quarter: 2019Q3

REPORT INFORMATION
  Report Type: Spontaneous
  Country: CA (occurrence: CA)
  Receive Date: 20190325
  Receipt Date: 20190715
  Transmission Date: 20191004
  Serious: Yes (Life-Threatening, Hospitalization, Other)
  Sender: FDA-Public Use
  Company Number: CA-PFIZER INC-2019125940

PATIENT
  Age: 2 Year
  Sex: Female

DRUGS (11)
  1. DAUNORUBICIN HYDROCHLORIDE. [Concomitant]
     Active Substance: DAUNORUBICIN HYDROCHLORIDE
     Dosage: 37.5 MG/M2, ON DAYS 2,4,6.
  2. ETOPOSIDE. [Concomitant]
     Active Substance: ETOPOSIDE
     Dosage: 100 MG/M2, ON DAYS 1-5
  3. PIPERACILLIN/TAZOBACTAM [Concomitant]
     Active Substance: PIPERACILLIN SODIUM\TAZOBACTAM SODIUM
     Indication: FEBRILE NEUTROPENIA
     Dosage: 1200 MG, 3X/DAY
     Dates: start: 20171027, end: 20171103
  4. CYTARABINE. [Suspect]
     Active Substance: CYTARABINE
     Dosage: 65 MG, 2X/DAY (100MG/M2) - HAD ADDITIONAL CYTARABINE (SIMILAR DOSING TO PRIOR)
     Route: 037
  5. DAUNORUBICIN HYDROCHLORIDE. [Concomitant]
     Active Substance: DAUNORUBICIN HYDROCHLORIDE
     Dosage: 32.5 MG, UNK
     Route: 042
     Dates: start: 20171030
  6. MEROPENEM. [Concomitant]
     Active Substance: MEROPENEM
     Indication: FEBRILE NEUTROPENIA
     Dosage: UNK
     Route: 042
  7. RASBURICASE [Concomitant]
     Active Substance: RASBURICASE
     Indication: TUMOUR LYSIS SYNDROME
     Dosage: 2.25 MG, (4 DOSES)
     Route: 042
  8. CYTARABINE. [Suspect]
     Active Substance: CYTARABINE
     Indication: ACUTE MYELOID LEUKAEMIA
     Dosage: 65 MG, 2X/DAY (100MG/M2)
     Route: 037
     Dates: start: 20171030, end: 20171109
  9. DAUNORUBICIN HYDROCHLORIDE. [Concomitant]
     Active Substance: DAUNORUBICIN HYDROCHLORIDE
     Dosage: 32.5 MG, UNK
     Route: 042
     Dates: start: 20171101
  10. DAUNORUBICIN HYDROCHLORIDE. [Concomitant]
     Active Substance: DAUNORUBICIN HYDROCHLORIDE
     Dosage: 32.5 MG, UNK
     Route: 042
     Dates: start: 20171103
  11. RASBURICASE [Concomitant]
     Active Substance: RASBURICASE
     Indication: HYPERTENSION

REACTIONS (10)
  - Rash vesicular [Recovered/Resolved]
  - Rash erythematous [Recovered/Resolved]
  - Oral mucosal exfoliation [Recovered/Resolved]
  - Skin ulcer [Not Recovered/Not Resolved]
  - Toxic epidermal necrolysis [Recovered/Resolved]
  - Epidermal necrosis [Recovered/Resolved]
  - Skin exfoliation [Recovered/Resolved]
  - Blister [Recovered/Resolved]
  - Pain [Recovered/Resolved]
  - Toxic erythema of chemotherapy [Recovered/Resolved]

NARRATIVE: CASE EVENT DATE: 20171105
